FAERS Safety Report 9384483 (Version 5)
Quarter: 2014Q1

REPORT INFORMATION
  Report Type: Report from Study
  Country: US (occurrence: US)
  Receive Date: 20130705
  Receipt Date: 20140320
  Transmission Date: 20141002
  Serious: Yes (Hospitalization)
  Sender: FDA-Public Use
  Company Number: US-BAYER-2012-088440

PATIENT
  Sex: Female

DRUGS (9)
  1. REGORAFENIB [Suspect]
     Indication: COLORECTAL CANCER METASTATIC
     Dosage: 160 MG/DAY
     Route: 048
     Dates: start: 20120720, end: 20120802
  2. REGORAFENIB [Suspect]
     Indication: COLORECTAL CANCER METASTATIC
     Dosage: DAILY DOSE 120 MG
     Route: 048
     Dates: start: 20120806, end: 20120809
  3. ZOFRAN [Concomitant]
     Indication: NAUSEA
     Dosage: 4 MG/DAY
     Route: 048
     Dates: start: 20120815
  4. MAGNESIUM OXIDE [Concomitant]
     Indication: DYSPEPSIA
     Dosage: 400 MG/DAY
     Route: 048
     Dates: start: 20120815
  5. CARAFATE [Concomitant]
     Indication: PROPHYLAXIS AGAINST GASTROINTESTINAL ULCER
     Dosage: 1 G/DAY
     Route: 048
     Dates: start: 20120815
  6. PHOSPHORUS [Concomitant]
     Indication: BLOOD PHOSPHORUS DECREASED
     Dosage: 1 TAB/DAY
     Route: 048
     Dates: start: 20120815
  7. REGLAN [Concomitant]
     Indication: GASTROOESOPHAGEAL REFLUX DISEASE
     Dosage: 5 MG/DAY
     Route: 048
     Dates: start: 20120815
  8. MEROPENEM [Concomitant]
     Indication: INFECTION
     Dosage: 1 G/DAY
     Route: 042
     Dates: start: 20120815
  9. DILAUDID [Concomitant]
     Indication: PAIN
     Dosage: UNK
     Dates: start: 201208

REACTIONS (2)
  - Fatigue [Unknown]
  - Dehydration [Not Recovered/Not Resolved]
